FAERS Safety Report 9845889 (Version 1)
Quarter: 2014Q1

REPORT INFORMATION
  Report Type: Spontaneous
  Country: US (occurrence: US)
  Receive Date: 20140127
  Receipt Date: 20140127
  Transmission Date: 20141002
  Serious: No
  Sender: FDA-Public Use
  Company Number: US-PFIZER INC-2014022921

PATIENT
  Age: 56 Year
  Sex: Male
  Weight: 111 kg

DRUGS (5)
  1. LYRICA [Suspect]
     Indication: DIABETIC NEUROPATHY
     Dosage: 75 MG, UNK
     Dates: start: 201202
  2. LYRICA [Suspect]
     Dosage: 100 MG, UNK
  3. LYRICA [Suspect]
     Dosage: 150 MG, 3X/DAY
  4. LYRICA [Suspect]
     Dosage: UNK
  5. METFORMIN [Concomitant]
     Indication: DIABETES MELLITUS
     Dosage: 1000 MG, 1X/DAY

REACTIONS (7)
  - Drug ineffective [Not Recovered/Not Resolved]
  - Feeling hot [Unknown]
  - Hyperhidrosis [Unknown]
  - Peripheral coldness [Unknown]
  - Insomnia [Unknown]
  - Blood calcium increased [Unknown]
  - Blood potassium decreased [Unknown]
